FAERS Safety Report 9275877 (Version 2)
Quarter: 2013Q2

REPORT INFORMATION
  Report Type: Report from Study
  Country: SE (occurrence: SE)
  Receive Date: 20130507
  Receipt Date: 20130626
  Transmission Date: 20140414
  Serious: Yes (Life-Threatening, Hospitalization, Disabling, Other)
  Sender: FDA-Public Use
  Company Number: SE-CELGENEUS-150-50794-13044364

PATIENT
  Age: 62 Year
  Sex: Female
  Weight: 72 kg

DRUGS (2)
  1. VIDAZA [Suspect]
     Indication: MYELOID LEUKAEMIA
     Route: 058
     Dates: start: 20130402, end: 20130410
  2. REVLIMID [Suspect]
     Indication: MYELOID LEUKAEMIA
     Route: 048
     Dates: start: 20130402, end: 20130409

REACTIONS (3)
  - Pharyngeal abscess [Not Recovered/Not Resolved]
  - Subarachnoid haemorrhage [Not Recovered/Not Resolved]
  - Rash pruritic [Recovered/Resolved]
